FAERS Safety Report 7201413-5 (Version None)
Quarter: 2010Q4

REPORT INFORMATION
  Report Type: 
  Country: None (occurrence: None)
  Receive Date: 20101229
  Receipt Date: 20101221
  Transmission Date: 20110411
  Serious: Yes (Hospitalization)
  Sender: FDA-Public Use
  Company Number: JP-ASTELLAS-2010JP007574

PATIENT
  Age: 87 Year
  Sex: Male

DRUGS (3)
  1. VESICARE [Suspect]
     Indication: HYPERTONIC BLADDER
     Dosage: 5 MG, UNKNOWN/D
     Route: 048
     Dates: start: 20101109, end: 20101210
  2. VESICARE [Suspect]
     Indication: NOCTURIA
  3. HALTHROW [Concomitant]
     Dosage: 0.2 MG, UNKNOWN/D
     Route: 048
     Dates: start: 20100101, end: 20101210

REACTIONS (1)
  - HYPERKALAEMIA [None]
